FAERS Safety Report 9112149 (Version 2)
Quarter: 2014Q1

REPORT INFORMATION
  Report Type: Spontaneous
  Country: US (occurrence: US)
  Receive Date: 20130219
  Receipt Date: 20140213
  Transmission Date: 20141002
  Serious: Yes (Other)
  Sender: FDA-Public Use
  Company Number: US-BRISTOL-MYERS SQUIBB COMPANY-17039322

PATIENT
  Age: 64 Year
  Sex: Female

DRUGS (1)
  1. ORENCIA FOR INJ 250 MG/VIAL [Suspect]
     Dosage: LAST INFUSION:4OCT12,VIAL, DEC2012?1DF= 250MG/VIAL
     Route: 042

REACTIONS (2)
  - Pneumonia [Unknown]
  - Drug ineffective [Unknown]
